FAERS Safety Report 16984521 (Version 1)
Quarter: 2019Q4

REPORT INFORMATION
  Report Type: Spontaneous
  Country: US (occurrence: US)
  Receive Date: 20191101
  Receipt Date: 20191101
  Transmission Date: 20200122
  Serious: No
  Sender: FDA-Public Use
  Company Number: US-PERRIGO-19US002914

PATIENT
  Sex: Male
  Weight: 61.22 kg

DRUGS (8)
  1. FUROSEMIDE. [Concomitant]
     Active Substance: FUROSEMIDE
     Indication: HYDRONEPHROSIS
     Dosage: 40 MG
     Route: 065
     Dates: start: 2014
  2. TAMSULOSIN [Concomitant]
     Active Substance: TAMSULOSIN
     Indication: MICTURITION DISORDER
     Dosage: UNK
     Route: 065
     Dates: start: 2014
  3. PRILOSEC [Concomitant]
     Active Substance: OMEPRAZOLE MAGNESIUM
     Indication: DYSPEPSIA
     Dosage: UNKNOWN, UNKNOWN
     Route: 048
     Dates: start: 2019
  4. ALLOPURINOL. [Concomitant]
     Active Substance: ALLOPURINOL
     Indication: GOUT
     Dosage: 100 MG
     Route: 065
     Dates: start: 2014
  5. FINASTERIDE. [Concomitant]
     Active Substance: FINASTERIDE
     Indication: PROSTATOMEGALY
     Dosage: 5 MG
     Route: 065
     Dates: start: 2014
  6. FAMOTIDINE. [Suspect]
     Active Substance: FAMOTIDINE
     Indication: DYSPEPSIA
     Dosage: 20 MG QD, PRN
     Route: 048
     Dates: start: 2018
  7. PRESERVISION [Concomitant]
     Active Substance: MINERALS\VITAMINS
     Indication: MACULAR DEGENERATION
     Dosage: UNK
     Route: 065
     Dates: start: 2014
  8. CALCITRIOL. [Concomitant]
     Active Substance: CALCITRIOL
     Indication: RENAL FAILURE
     Dosage: .5 MCG
     Route: 065
     Dates: start: 2014

REACTIONS (2)
  - Therapeutic product effect variable [Unknown]
  - Contraindicated product administered [Unknown]

NARRATIVE: CASE EVENT DATE: 2018
